FAERS Safety Report 14425398 (Version 1)
Quarter: 2018Q1

REPORT INFORMATION
  Report Type: Spontaneous
  Country: US (occurrence: US)
  Receive Date: 20180123
  Receipt Date: 20180123
  Transmission Date: 20180509
  Serious: No
  Sender: FDA-Public Use
  Company Number: US-PERRIGO-17US002008

PATIENT
  Age: 5 Year
  Sex: Male
  Weight: 27.21 kg

DRUGS (2)
  1. IBUPROFEN. [Suspect]
     Active Substance: IBUPROFEN
     Indication: PYREXIA
     Dosage: 200 MG, SINGLE
     Route: 048
     Dates: start: 20170226, end: 20170226
  2. ERYTHROMYCIN. [Suspect]
     Active Substance: ERYTHROMYCIN
     Indication: TONSILLITIS
     Dosage: 7.5 ML, SINGLE
     Route: 048
     Dates: start: 20170226, end: 20170226

REACTIONS (2)
  - Abdominal pain upper [Recovered/Resolved]
  - Headache [Recovered/Resolved]

NARRATIVE: CASE EVENT DATE: 20170226
